FAERS Safety Report 21265688 (Version 1)
Quarter: 2022Q3

REPORT INFORMATION
  Report Type: Spontaneous
  Country: US (occurrence: US)
  Receive Date: 20220829
  Receipt Date: 20220829
  Transmission Date: 20221027
  Serious: Yes (Disabling, Other)
  Sender: FDA-Public Use
  Company Number: US-BAYER-2022A117660

PATIENT
  Age: 24 Year
  Sex: Female

DRUGS (2)
  1. KYLEENA [Suspect]
     Active Substance: LEVONORGESTREL
     Dosage: 17.5?G/DAY
     Route: 015
     Dates: start: 20200826, end: 20220823
  2. AMPHETAMINE\DEXTROAMPHETAMINE [Concomitant]
     Active Substance: AMPHETAMINE\DEXTROAMPHETAMINE
     Indication: Attention deficit hyperactivity disorder
     Dosage: UNK
     Dates: start: 20220725

REACTIONS (17)
  - Angioedema [Recovering/Resolving]
  - Depression [Not Recovered/Not Resolved]
  - Anxiety [Not Recovered/Not Resolved]
  - Mood swings [Not Recovered/Not Resolved]
  - Ovarian cyst [Recovering/Resolving]
  - Acne [Recovering/Resolving]
  - Hair growth abnormal [Recovering/Resolving]
  - Seborrhoea [Recovering/Resolving]
  - Alopecia [Recovering/Resolving]
  - Pruritus [Recovering/Resolving]
  - Headache [Recovering/Resolving]
  - Fatigue [Recovering/Resolving]
  - Lethargy [Recovering/Resolving]
  - Memory impairment [Recovering/Resolving]
  - Insomnia [Recovering/Resolving]
  - Crying [Recovering/Resolving]
  - Pelvic pain [Not Recovered/Not Resolved]

NARRATIVE: CASE EVENT DATE: 20200915
